FAERS Safety Report 6416012-2 (Version None)
Quarter: 2009Q4

REPORT INFORMATION
  Report Type: 
  Country: None (occurrence: None)
  Receive Date: 20091027
  Receipt Date: 20091019
  Transmission Date: 20100525
  Serious: Yes (Death)
  Sender: FDA-Public Use
  Company Number: FR-ELI_LILLY_AND_COMPANY-FR200909006921

PATIENT
  Sex: Female
  Weight: 60 kg

DRUGS (10)
  1. DROTRECOGIN ALFA (ACTIVATED) [Suspect]
     Indication: SEPSIS
     Dosage: 0.024 MG/KG, EVERY HOUR
     Route: 042
     Dates: start: 20090920, end: 20090923
  2. SUFENTANIL [Concomitant]
     Indication: SEDATION
     Dates: start: 20090920, end: 20090922
  3. HYPNOVEL [Concomitant]
     Indication: SEDATION
     Dates: start: 20090920, end: 20090922
  4. ADOLORIN [Concomitant]
     Indication: MUSCLE CONTRACTURE
     Dosage: 2 D/F, UNK
     Route: 030
     Dates: start: 20090917, end: 20090917
  5. DICLOFENAC [Concomitant]
     Indication: MUSCLE CONTRACTURE
     Dosage: 500 MG, 3/D
     Dates: start: 20090917, end: 20090917
  6. VOLTARENE /00372302/ [Concomitant]
     Indication: MUSCLE CONTRACTURE
     Dosage: 2 D/F, UNK
     Route: 030
     Dates: start: 20090917
  7. CLAFORAN [Concomitant]
     Indication: MENINGITIS
     Dosage: 2 G, UNK
     Dates: start: 20090920
  8. CLAFORAN [Concomitant]
     Dosage: 3 G, 6X/24H
  9. DEXAMETHASONE [Concomitant]
     Indication: MENINGITIS
     Dosage: 10 MG, UNK
     Dates: start: 20090920
  10. NORADRENALIN                       /00127501/ [Concomitant]
     Indication: HYPOTENSION
     Dosage: 3 MG, EVERY HOUR
     Dates: start: 20090920, end: 20090920

REACTIONS (4)
  - BRAIN DEATH [None]
  - HAEMORRHAGE INTRACRANIAL [None]
  - MENINGOENCEPHALITIS BACTERIAL [None]
  - SEPTIC SHOCK [None]
